FAERS Safety Report 18922616 (Version 2)
Quarter: 2022Q1

REPORT INFORMATION
  Report Type: Report from Study
  Country: JP (occurrence: JP)
  Receive Date: 20210222
  Receipt Date: 20220124
  Transmission Date: 20220424
  Serious: Yes (Other)
  Sender: FDA-Public Use
  Company Number: JP-CELGENE-JPN-20210203693

PATIENT
  Age: 71 Year
  Sex: Female

DRUGS (8)
  1. REVLIMID [Suspect]
     Active Substance: LENALIDOMIDE
     Indication: Adult T-cell lymphoma/leukaemia
     Dosage: 10 MILLIGRAM
     Route: 048
     Dates: start: 20171128, end: 20171217
  2. REVLIMID [Suspect]
     Active Substance: LENALIDOMIDE
     Dosage: 10 MILLIGRAM
     Route: 048
     Dates: start: 20180320, end: 20180326
  3. POTELIGEO [Concomitant]
     Active Substance: MOGAMULIZUMAB-KPKC
     Indication: Adult T-cell lymphoma/leukaemia
     Dosage: UNKNOWN
     Route: 065
  4. POTELIGEO [Concomitant]
     Active Substance: MOGAMULIZUMAB-KPKC
     Dosage: 50 MILLIGRAM
     Route: 041
     Dates: start: 20180312, end: 20180312
  5. ACYCLOVIR [Concomitant]
     Active Substance: ACYCLOVIR
     Indication: Adverse event
     Dosage: UNKNOWN
     Route: 041
  6. NEOMALLERMIN TR [Concomitant]
     Indication: Adverse event
     Dosage: UNKNOWN
     Route: 048
  7. FILGRASTIM [Concomitant]
     Active Substance: FILGRASTIM
     Indication: Adverse event
     Dosage: UNKNOWN
     Route: 041
  8. LENOGRASTIM [Concomitant]
     Active Substance: LENOGRASTIM
     Indication: Adverse event
     Dosage: UNKNOWN
     Route: 065

REACTIONS (7)
  - Myelosuppression [Unknown]
  - Herpes zoster cutaneous disseminated [Unknown]
  - Alopecia [Unknown]
  - Malaise [Unknown]
  - Nausea [Unknown]
  - Pruritus [Unknown]
  - Adult T-cell lymphoma/leukaemia [Unknown]

NARRATIVE: CASE EVENT DATE: 20180327
